FAERS Safety Report 8848990 (Version 4)
Quarter: 2013Q1

REPORT INFORMATION
  Report Type: Spontaneous
  Country: FR (occurrence: None)
  Receive Date: 20121016
  Receipt Date: 20121210
  Transmission Date: 20140127
  Serious: Yes (Other)
  Sender: FDA-Public Use
  Company Number: 2012-4559

PATIENT
  Age: 39 Year
  Sex: Female
  Weight: 52 kg

DRUGS (2)
  1. DYSPORT [Suspect]
     Indication: BRUXISM
     Dosage: NOT REPORTED (1 IN 1 CYCLE(S)),INTRAMUSCULAR
     Route: 030
     Dates: start: 20120327, end: 20120327
  2. DYSPORT [Suspect]
     Indication: OFF LABEL USE
     Dosage: NOT REPORTED (1 IN 1 CYCLE(S)),INTRAMUSCULAR
     Route: 030
     Dates: start: 20120327, end: 20120327

REACTIONS (4)
  - Respiratory disorder [None]
  - Skin odour abnormal [None]
  - Dyspnoea [None]
  - Disease recurrence [None]
